FAERS Safety Report 13260234 (Version 2)
Quarter: 2017Q1

REPORT INFORMATION
  Report Type: Report from Study
  Country: UA (occurrence: UA)
  Receive Date: 20170222
  Receipt Date: 20170302
  Transmission Date: 20170428
  Serious: Yes (Other)
  Sender: FDA-Public Use
  Company Number: UA-TEVA-741825ISR

PATIENT
  Age: 7 Year
  Sex: Male
  Weight: 20 kg

DRUGS (16)
  1. ETAMSYLATE [Concomitant]
     Active Substance: ETHAMSYLATE
     Indication: HAEMORRHAGE
     Dosage: 3 ML DAILY;
     Route: 042
     Dates: start: 20170121, end: 20170129
  2. VINCRISTIN [Suspect]
     Active Substance: VINCRISTINE
     Indication: EMBRYONAL RHABDOMYOSARCOMA
     Dosage: 1.29 MILLIGRAM DAILY;
     Route: 042
     Dates: start: 20170204
  3. LONQUEX [Suspect]
     Active Substance: LIPEGFILGRASTIM
  4. NEUPOGEN [Suspect]
     Active Substance: FILGRASTIM
     Indication: NEUTROPENIA
     Dosage: 105 MICROGRAM DAILY; LAST DOSE PRIOR TO SAE: 05-JAN-2017
     Route: 058
     Dates: start: 20161226, end: 20170105
  5. DOXORUBICINUM [Suspect]
     Active Substance: DOXORUBICIN
     Indication: EMBRYONAL RHABDOMYOSARCOMA
     Dosage: 25.8 MILLIGRAM DAILY;
     Route: 042
     Dates: start: 20170205
  6. ONDANSETRONUM [Concomitant]
     Active Substance: ONDANSETRON
     Indication: PROPHYLAXIS OF NAUSEA AND VOMITING
     Dosage: 12 MILLIGRAM DAILY;
     Route: 042
     Dates: start: 20170114, end: 20170116
  7. CEFEPIMUM [Concomitant]
     Active Substance: CEFEPIME HYDROCHLORIDE
     Indication: LEUKOPENIA
     Dosage: 2 GRAM DAILY;
     Route: 042
     Dates: start: 20170121, end: 20170125
  8. PLATELETS [Concomitant]
     Active Substance: HUMAN PLATELET, ALLOGENIC
     Indication: THROMBOCYTOPENIA
     Dosage: 600 ML DAILY;
     Route: 042
     Dates: start: 20170123, end: 20170123
  9. DACTINOMYCINUM [Suspect]
     Active Substance: DACTINOMYCIN
     Indication: EMBRYONAL RHABDOMYOSARCOMA
     Dosage: 1.29 MILLIGRAM DAILY;
     Route: 042
     Dates: start: 20170204
  10. CANSIDAS [Concomitant]
     Indication: NEUTROPENIA
     Dosage: 50 MILLIGRAM DAILY;
     Route: 042
     Dates: start: 20170124, end: 20170130
  11. PLATELETS [Concomitant]
     Active Substance: HUMAN PLATELET, ALLOGENIC
     Dosage: 600 ML DAILY;
     Route: 042
     Dates: start: 20170127, end: 20170127
  12. HOLOXAN [Suspect]
     Active Substance: IFOSFAMIDE
     Indication: EMBRYONAL RHABDOMYOSARCOMA
     Dosage: 2580 MILLIGRAM DAILY;
     Route: 042
     Dates: start: 20170204
  13. ONDANSETRONUM [Concomitant]
     Active Substance: ONDANSETRON
     Dosage: 12 MILLIGRAM DAILY;
     Route: 042
     Dates: start: 20170121, end: 20170121
  14. AMINOCAPRONIC ACID [Concomitant]
     Active Substance: AMINOCAPROIC ACID
     Indication: HAEMORRHAGE
     Dosage: 30 ML DAILY;
     Route: 042
     Dates: start: 20170121, end: 20170129
  15. PLATELETS [Concomitant]
     Active Substance: HUMAN PLATELET, ALLOGENIC
     Dosage: 600 ML DAILY;
     Route: 042
     Dates: start: 20170213, end: 20170213
  16. AMIKACINUM [Concomitant]
     Indication: NEUTROPENIA
     Dosage: 400 MILLIGRAM DAILY;
     Route: 042
     Dates: start: 20170124, end: 20170129

REACTIONS (2)
  - Neutropenia [Recovered/Resolved]
  - Febrile neutropenia [Recovered/Resolved]

NARRATIVE: CASE EVENT DATE: 20170215
